FAERS Safety Report 14424090 (Version 1)
Quarter: 2018Q1

REPORT INFORMATION
  Report Type: Spontaneous
  Country: CO (occurrence: CO)
  Receive Date: 20180123
  Receipt Date: 20180123
  Transmission Date: 20180509
  Serious: Yes (Life-Threatening)
  Sender: FDA-Public Use
  Company Number: CO-BAXTER-2018BAX001989

PATIENT
  Age: 35 Year
  Sex: Male

DRUGS (2)
  1. FENTANYL. [Suspect]
     Active Substance: FENTANYL
     Indication: PAIN
     Dosage: VOLUME OF INFUSION RATE STARTED AT 20 MCG/HR (2 CC/HR), CHANGED TO 50 MCG/HR (5 CC/HR) AND AGAIN DEC
     Route: 041
     Dates: start: 20180102, end: 201801
  2. CLORURO DE SODIO 0.9% [Suspect]
     Active Substance: SODIUM CHLORIDE
     Indication: MEDICATION DILUTION
     Dosage: VOLUME OF INFUSION RATE STARTED AT 20 MCG/HR (2 CC/HR), CHANGED TO 50 MCG/HR (5 CC/HR) AND AGAIN DEC
     Route: 041
     Dates: start: 20180102, end: 201801

REACTIONS (2)
  - Snoring [Unknown]
  - Somnolence [Unknown]

NARRATIVE: CASE EVENT DATE: 20180102
